FAERS Safety Report 9943019 (Version 1)
Quarter: 2014Q1

REPORT INFORMATION
  Report Type: Spontaneous
  Country: US (occurrence: US)
  Receive Date: 20140303
  Receipt Date: 20140303
  Transmission Date: 20141002
  Serious: Yes (Other)
  Sender: FDA-Public Use
  Company Number: US-BAXTER-2014BAX009275

PATIENT
  Age: 19 Year
  Sex: Female

DRUGS (5)
  1. GAMMAGARD LIQUID [Suspect]
     Indication: AUTOIMMUNE HAEMOLYTIC ANAEMIA
     Dosage: 3 TOTAL DOSES
     Route: 042
  2. METHYLPREDNISOLONE [Concomitant]
     Indication: PRODUCT USED FOR UNKNOWN INDICATION
     Route: 042
  3. EPOETIN ALFA [Concomitant]
     Indication: PRODUCT USED FOR UNKNOWN INDICATION
     Route: 058
  4. RITUXIMAB [Concomitant]
     Indication: PRODUCT USED FOR UNKNOWN INDICATION
     Dosage: TOTAL OF 4 DOSES
     Route: 042
  5. HEMOPURE [Concomitant]
     Indication: PRODUCT USED FOR UNKNOWN INDICATION
     Dosage: AT A RATE OF 0.25 G/MIN OVER 4 HOURS
     Route: 042

REACTIONS (5)
  - Haemoglobin decreased [Unknown]
  - Tachycardia [Unknown]
  - Ischaemia [Unknown]
  - Abdominal pain [Unknown]
  - Mental status changes [Unknown]
